FAERS Safety Report 10404204 (Version 1)
Quarter: 2014Q1

REPORT INFORMATION
  Report Type: Spontaneous
  Country: US (occurrence: None)
  Receive Date: 20131226
  Receipt Date: 20131226
  Transmission Date: 20141002
  Serious: Yes (Hospitalization, Disabling)
  Sender: FDA-Public Use
  Company Number: PHEH2011US009347

PATIENT
  Age: 72 Year
  Sex: Male

DRUGS (3)
  1. AFINITOR (RAD) UNKNOWN [Suspect]
     Indication: BONE CANCER
     Route: 048
     Dates: start: 201107
  2. ACTOS (PIOGLITAZONE, PIOGLITAZONE HYDROCHLORIDE) [Concomitant]
  3. ANTIHYPERTENSIVES (NO INGREDIENTS/SUBSTANCES) [Concomitant]

REACTIONS (7)
  - Neoplasm [None]
  - Oedema peripheral [None]
  - Drug ineffective [None]
  - Cough [None]
  - Malignant neoplasm progression [None]
  - Abasia [None]
  - Dysstasia [None]
